FAERS Safety Report 9397083 (Version 4)
Quarter: 2013Q4

REPORT INFORMATION
  Report Type: Spontaneous
  Country: US (occurrence: US)
  Receive Date: 20130712
  Receipt Date: 20131203
  Transmission Date: 20140711
  Serious: Yes (Other)
  Sender: FDA-Public Use
  Company Number: US-PFIZER INC-2013204790

PATIENT
  Age: 64 Year
  Sex: Male
  Weight: 120 kg

DRUGS (12)
  1. LYRICA [Suspect]
     Indication: DIABETIC NEUROPATHY
     Dosage: UNK
  2. LYRICA [Suspect]
     Indication: NEUROPATHY PERIPHERAL
     Dosage: UNK
     Dates: start: 201308
  3. LYRICA [Suspect]
     Dosage: 25 MG, 2X/DAY
     Dates: start: 2013
  4. CYMBALTA [Suspect]
     Indication: DIABETIC NEUROPATHY
     Dosage: UNK
  5. DIGOXIN [Concomitant]
     Dosage: UNK
  6. LEVOTHYROXINE [Concomitant]
     Dosage: UNK
  7. METFORMIN [Concomitant]
     Dosage: UNK
  8. SIMVASTATIN [Concomitant]
     Dosage: UNK
  9. LOSARTAN [Concomitant]
     Dosage: UNK
  10. GLIPIZIDE [Concomitant]
     Dosage: UNK
  11. GEMFIBROZIL [Concomitant]
     Dosage: UNK
  12. VIAGRA [Concomitant]
     Dosage: 100 MG, UNK

REACTIONS (11)
  - Haemorrhage urinary tract [Unknown]
  - Chromaturia [Unknown]
  - Euphoric mood [Unknown]
  - Feeling abnormal [Recovered/Resolved]
  - Sexual dysfunction [Recovered/Resolved]
  - Male orgasmic disorder [Recovered/Resolved]
  - Dysuria [Unknown]
  - Medication residue present [Unknown]
  - Confusional state [Unknown]
  - Tremor [Unknown]
  - Drug ineffective [Unknown]
